FAERS Safety Report 5213056-3 (Version None)
Quarter: 2007Q1

REPORT INFORMATION
  Report Type: 
  Country: None (occurrence: None)
  Receive Date: 20070119
  Receipt Date: 20070110
  Transmission Date: 20070707
  Serious: Yes (Other)
  Sender: FDA-Public Use
  Company Number: NSADSS2002038509

PATIENT
  Age: 65 Year
  Sex: Female

DRUGS (3)
  1. REMICADE [Suspect]
     Indication: RHEUMATOID ARTHRITIS
     Dosage: RECEIVED 4 TREATMENTS
     Route: 041
  2. AZATHIOPRINE [Concomitant]
  3. PREDNISONE [Concomitant]

REACTIONS (3)
  - ERYTHEMA MULTIFORME [None]
  - MALAISE [None]
  - NAUSEA [None]
